FAERS Safety Report 8719891 (Version 3)
Quarter: 2012Q4

REPORT INFORMATION
  Report Type: 
  Country: JP (occurrence: JP)
  Receive Date: 20120813
  Receipt Date: 20120904
  Transmission Date: 20130627
  Serious: Yes (Hospitalization)
  Sender: FDA-Public Use
  Company Number: JP-PFIZER INC-2012165570

PATIENT
  Age: 20 Year
  Sex: Male
  Weight: 75 kg

DRUGS (10)
  1. LYRICA [Suspect]
     Indication: HYPOAESTHESIA
     Dosage: 75 mg, daily
     Route: 048
     Dates: start: 20120621, end: 20120710
  2. LYRICA [Suspect]
     Indication: NEURALGIA
  3. LEVOFLOXACIN SODIUM [Suspect]
     Indication: BRONCHITIS
     Dosage: 500 mg, 1x/day
     Route: 048
     Dates: start: 20120619, end: 20120623
  4. LEVOFLOXACIN SODIUM [Suspect]
     Indication: URINARY TRACT INFECTION
     Dosage: 500 mg, 1x/day
     Route: 048
     Dates: start: 20120703, end: 20120708
  5. GASTER [Concomitant]
     Indication: PROPHYLAXIS AGAINST GASTROINTESTINAL ULCER
     Dosage: 10 mg, 2x/day
     Route: 048
     Dates: start: 20120611, end: 20120712
  6. LOXONIN [Concomitant]
     Indication: ANALGESIC THERAPY
     Dosage: 60 mg, 3x/day
     Route: 048
     Dates: start: 20120611, end: 20120712
  7. REBAMIPIDE [Concomitant]
     Indication: PROPHYLAXIS AGAINST GASTROINTESTINAL ULCER
     Dosage: 100 mg, 3x/day
     Route: 048
     Dates: start: 20120611, end: 20120712
  8. BISOLVON [Concomitant]
     Indication: PRODUCTIVE COUGH
     Dosage: 4 mg, 3x/day
     Route: 048
     Dates: start: 20120611, end: 20120712
  9. SAWACILLIN [Concomitant]
     Indication: BRONCHITIS
     Dosage: 250 mg, 3x/day
     Route: 048
     Dates: start: 20120614, end: 20120619
  10. CEFAMEZIN ^FUJISAWA^ [Concomitant]
     Indication: INFECTION PROPHYLAXIS
     Dosage: 1 g, 2x/day
     Route: 041
     Dates: start: 20120611, end: 20120613

REACTIONS (5)
  - Rhabdomyolysis [Unknown]
  - Blood creatine phosphokinase increased [Recovered/Resolved]
  - Aspartate aminotransferase increased [Recovered/Resolved]
  - Alanine aminotransferase increased [Recovered/Resolved]
  - Blood lactate dehydrogenase increased [Recovered/Resolved]
